FAERS Safety Report 14690097 (Version 1)
Quarter: 2018Q1

REPORT INFORMATION
  Report Type: Spontaneous
  Country: US (occurrence: US)
  Receive Date: 20180328
  Receipt Date: 20180328
  Transmission Date: 20180509
  Serious: Yes (Death)
  Sender: FDA-Public Use
  Company Number: US-INTERCEPT-PMOCA2018000442

PATIENT

DRUGS (3)
  1. OCALIVA [Suspect]
     Active Substance: OBETICHOLIC ACID
     Dosage: 10 MG, 2X/WK
     Route: 048
     Dates: start: 20180118, end: 2018
  2. OCALIVA [Suspect]
     Active Substance: OBETICHOLIC ACID
     Dosage: UNK
     Route: 048
     Dates: start: 20171019, end: 20180117
  3. OCALIVA [Suspect]
     Active Substance: OBETICHOLIC ACID
     Indication: PRODUCT USE IN UNAPPROVED INDICATION
     Dosage: 5 MG, 2X/WK
     Route: 048
     Dates: start: 20170928, end: 20171018

REACTIONS (3)
  - Hepatic failure [Fatal]
  - Drug ineffective for unapproved indication [Unknown]
  - Sepsis [Fatal]
